FAERS Safety Report 8439179-3 (Version None)
Quarter: 2012Q2

REPORT INFORMATION
  Report Type: 
  Country: None (occurrence: None)
  Receive Date: 20120615
  Receipt Date: 20120607
  Transmission Date: 20120825
  Serious: Yes (Other)
  Sender: FDA-Public Use
  Company Number: PHEH2012US011687

PATIENT
  Sex: Female

DRUGS (2)
  1. COUMADIN [Concomitant]
  2. GLEEVEC [Suspect]
     Indication: CHRONIC MYELOID LEUKAEMIA
     Dosage: 400 MG, QD
     Route: 048

REACTIONS (3)
  - EYE HAEMORRHAGE [None]
  - BLOOD BLISTER [None]
  - BLINDNESS [None]
